FAERS Safety Report 8898579 (Version 2)
Quarter: 2012Q4

REPORT INFORMATION
  Report Type: 
  Country: GR (occurrence: GR)
  Receive Date: 20121109
  Receipt Date: 20121114
  Transmission Date: 20130627
  Serious: Yes (Death)
  Sender: FDA-Public Use
  Company Number: GR-009507513-1211GRC001229

PATIENT
  Age: 82 Year
  Sex: Female

DRUGS (2)
  1. PRIMAXIN I.V. [Suspect]
  2. CEFOXITIN [Concomitant]
     Indication: PAROTITIS
     Dosage: 2 g, tid
     Route: 042

REACTIONS (1)
  - Drug ineffective [Fatal]
